FAERS Safety Report 4778146-8 (Version None)
Quarter: 2005Q3

REPORT INFORMATION
  Report Type: 
  Country: None (occurrence: None)
  Receive Date: 20050922
  Receipt Date: 20050912
  Transmission Date: 20060218
  Serious: Yes (Other)
  Sender: FDA-Public Use
  Company Number: 2005126891

PATIENT
  Age: 54 Year
  Sex: Male

DRUGS (4)
  1. LIPITOR [Suspect]
     Indication: BLOOD CHOLESTEROL INCREASED
     Dosage: UNKNOWN (10 MG, UNKNOWN), UNKNOWN
     Route: 065
  2. CADUET [Suspect]
     Indication: BLOOD CHOLESTEROL
     Dosage: UNKNOWN (1 IN 1 D), UNKNOWN
     Route: 065
     Dates: start: 20050510, end: 20050613
  3. BENICAR [Concomitant]
  4. ZESTRIL [Concomitant]

REACTIONS (6)
  - GASTRIC BYPASS [None]
  - HYPERTENSION [None]
  - OCULAR VASCULAR DISORDER [None]
  - PAPILLOEDEMA [None]
  - TRANSIENT ISCHAEMIC ATTACK [None]
  - VISUAL DISTURBANCE [None]
